FAERS Safety Report 9784752 (Version 2)
Quarter: 2014Q1

REPORT INFORMATION
  Report Type: Spontaneous
  Country: ES (occurrence: ES)
  Receive Date: 20131227
  Receipt Date: 20140101
  Transmission Date: 20141002
  Serious: Yes (Other)
  Sender: FDA-Public Use
  Company Number: ES-ROCHE-1324351

PATIENT
  Age: 4 Year
  Sex: Female

DRUGS (1)
  1. SOMATROPIN [Suspect]
     Indication: BODY HEIGHT BELOW NORMAL
     Route: 065

REACTIONS (3)
  - Osteochondrosis [Unknown]
  - Arthralgia [Unknown]
  - Gait disturbance [Unknown]
